FAERS Safety Report 7942417-4 (Version None)
Quarter: 2011Q4

REPORT INFORMATION
  Report Type: 
  Country: None (occurrence: None)
  Receive Date: 20111128
  Receipt Date: 20111117
  Transmission Date: 20120403
  Serious: Yes (Death, Congenital Anomaly)
  Sender: FDA-Public Use
  Company Number: NL-UCBSA-046021

PATIENT

DRUGS (2)
  1. LAMOTRIGINE [Concomitant]
     Indication: EPILEPSY
     Route: 064
  2. LACOSAMIDE [Suspect]
     Indication: EPILEPSY
     Route: 064

REACTIONS (2)
  - ANENCEPHALY [None]
  - FOETAL EXPOSURE DURING PREGNANCY [None]
